FAERS Safety Report 7906534-7 (Version None)
Quarter: 2011Q4

REPORT INFORMATION
  Report Type: 
  Country: None (occurrence: None)
  Receive Date: 20111110
  Receipt Date: 20111108
  Transmission Date: 20120403
  Serious: Yes (Hospitalization, Other)
  Sender: FDA-Public Use
  Company Number: US-JNJFOC-20111007186

PATIENT
  Sex: Male
  Weight: 22.68 kg

DRUGS (2)
  1. LEVOFLOXACIN [Suspect]
     Indication: POSTOPERATIVE WOUND INFECTION
     Route: 048
     Dates: start: 20110601, end: 20110901
  2. LEVAQUIN [Suspect]
     Indication: POSTOPERATIVE WOUND INFECTION
     Route: 050
     Dates: start: 20110429, end: 20110601

REACTIONS (4)
  - PAIN IN EXTREMITY [None]
  - DIARRHOEA [None]
  - DEAFNESS [None]
  - TIC [None]
